FAERS Safety Report 19193165 (Version 1)
Quarter: 2021Q2

REPORT INFORMATION
  Report Type: Spontaneous
  Country: US (occurrence: US)
  Receive Date: 20210428
  Receipt Date: 20210428
  Transmission Date: 20210717
  Serious: Yes (Hospitalization)
  Sender: FDA-Public Use
  Company Number: US-ELI_LILLY_AND_COMPANY-US202104008235

PATIENT
  Sex: Female

DRUGS (3)
  1. HUMALOG [Suspect]
     Active Substance: INSULIN LISPRO
     Indication: TYPE 1 DIABETES MELLITUS
     Dosage: 0.5 INTERNATIONAL UNIT, EACH TIME
     Route: 065
  2. HUMALOG [Suspect]
     Active Substance: INSULIN LISPRO
     Indication: TYPE 1 DIABETES MELLITUS
     Dosage: 0.5 INTERNATIONAL UNIT, EACH TIME
     Route: 065
  3. HUMALOG [Suspect]
     Active Substance: INSULIN LISPRO
     Indication: TYPE 1 DIABETES MELLITUS
     Dosage: 0.5 INTERNATIONAL UNIT, AT A TIME
     Route: 065

REACTIONS (7)
  - Food allergy [Recovering/Resolving]
  - Platelet count decreased [Recovered/Resolved]
  - Lymphoma [Unknown]
  - Malaise [Unknown]
  - Autoimmune disorder [Unknown]
  - Weight decreased [Unknown]
  - Coeliac disease [Unknown]
